FAERS Safety Report 8171830-8 (Version None)
Quarter: 2012Q1

REPORT INFORMATION
  Report Type: 
  Country: None (occurrence: None)
  Receive Date: 20120228
  Receipt Date: 20120222
  Transmission Date: 20120608
  Serious: Yes (Hospitalization)
  Sender: FDA-Public Use
  Company Number: DE-BAYER-2011-120375

PATIENT
  Age: 60 Year
  Sex: Male
  Weight: 87 kg

DRUGS (1)
  1. GADAVIST [Suspect]
     Dosage: 16 ML, UNK

REACTIONS (5)
  - LOSS OF CONSCIOUSNESS [None]
  - FACIAL BONES FRACTURE [None]
  - DYSPNOEA [None]
  - RASH [None]
  - RASH PUSTULAR [None]
